FAERS Safety Report 17235264 (Version 1)
Quarter: 2020Q1

REPORT INFORMATION
  Report Type: Spontaneous
  Country: FR (occurrence: FR)
  Receive Date: 20200106
  Receipt Date: 20200106
  Transmission Date: 20200409
  Serious: Yes (Other)
  Sender: FDA-Public Use
  Company Number: FR-TEVA-2019-FR-1161782

PATIENT
  Age: 70 Year
  Sex: Male

DRUGS (1)
  1. TADAFIL [Suspect]
     Active Substance: TADALAFIL
     Indication: DYSURIA
     Dosage: 5 MG
     Route: 048
     Dates: start: 2017

REACTIONS (2)
  - Deafness bilateral [Not Recovered/Not Resolved]
  - Tinnitus [Not Recovered/Not Resolved]

NARRATIVE: CASE EVENT DATE: 201910
